FAERS Safety Report 23343405 (Version 1)
Quarter: 2023Q4

REPORT INFORMATION
  Report Type: Spontaneous
  Country: US (occurrence: US)
  Receive Date: 20231227
  Receipt Date: 20231227
  Transmission Date: 20240109
  Serious: No
  Sender: FDA-Public Use
  Company Number: US-PFIZER INC-PV202300204546

PATIENT
  Age: 78 Year

DRUGS (2)
  1. IBRANCE [Suspect]
     Active Substance: PALBOCICLIB
     Dosage: 75 MG, ONE DAILY ON DAYS 21 FOLLOWED BY 1 WEEK OFF
     Route: 048
  2. LETROZOLE [Concomitant]
     Active Substance: LETROZOLE

REACTIONS (4)
  - Fatigue [Unknown]
  - Diarrhoea [Unknown]
  - Off label use [Unknown]
  - Product use issue [Unknown]

NARRATIVE: CASE EVENT DATE: 20230831
